FAERS Safety Report 17875498 (Version 1)
Quarter: 2020Q2

REPORT INFORMATION
  Report Type: Spontaneous
  Country: CN (occurrence: CN)
  Receive Date: 20200609
  Receipt Date: 20200609
  Transmission Date: 20200714
  Serious: Yes (Other)
  Sender: FDA-Public Use
  Company Number: CN-BAXTER-2020BAX011493

PATIENT
  Age: 45 Year
  Sex: Female
  Weight: 43.8 kg

DRUGS (32)
  1. METHOTREXATE. [Suspect]
     Active Substance: METHOTREXATE
     Dosage: DOSE REINTRODUCED
     Route: 030
  2. SODIUM CHLORIDE. [Suspect]
     Active Substance: SODIUM CHLORIDE
     Indication: MEDICATION DILUTION
     Dosage: ETOPOSIDE 68MG + 0. 9% NS 500ML IVGTT BID D1 (COURSE 1)
     Route: 041
  3. SODIUM CHLORIDE. [Suspect]
     Active Substance: SODIUM CHLORIDE
     Dosage: DOSE REINTRODUCED,  ETOPOSIDE  + 0. 9% NS
     Route: 041
  4. GLUCOSE [Suspect]
     Active Substance: DEXTROSE
     Dosage: DOSE REINTRODUCED, ACTINOMYCETES D FOR INJECTION D + 5% GS
     Route: 041
  5. SODIUM CHLORIDE. [Suspect]
     Active Substance: SODIUM CHLORIDE
     Dosage: DOSE REINTRODUCED
     Route: 030
  6. SODIUM CHLORIDE. [Suspect]
     Active Substance: SODIUM CHLORIDE
     Dosage: FOURTH COURSE,  ETOPOSIDE 68 MG + 0. 9% NS 500 ML IVGTT
     Route: 041
     Dates: start: 20191229, end: 20191230
  7. ETOPOSIDE. [Suspect]
     Active Substance: ETOPOSIDE
     Dosage: FOURTH COURSE, ETOPOSIDE + 0. 9% NS
     Route: 041
     Dates: start: 20191129, end: 20191130
  8. VINCRISTINE SULFATE. [Suspect]
     Active Substance: VINCRISTINE SULFATE
     Dosage: DOSE REINTRODUCED
     Route: 030
  9. SODIUM CHLORIDE. [Suspect]
     Active Substance: SODIUM CHLORIDE
     Indication: MEDICATION DILUTION
     Route: 030
     Dates: start: 20191206, end: 20191206
  10. GLUCOSE [Suspect]
     Active Substance: DEXTROSE
     Indication: MEDICATION DILUTION
     Dosage: ACTINOMYCETES D FOR INJECTION 0. 5MG + 5% GS 500ML IVGTT QD D1-2
     Route: 041
  11. 0.9% SODIUM CHLORIDE INJECTION [Suspect]
     Active Substance: SODIUM CHLORIDE
     Dosage: METHOTREXATE INJECTION 0. 136G + 0. 9% NS 500ML IVGTT BID D1-2 (THIRD COURSE)
     Route: 041
  12. ETOPOSIDE. [Suspect]
     Active Substance: ETOPOSIDE
     Indication: CHORIOCARCINOMA
     Dosage: ETOPOSIDE + 0. 9% NS, D1 (FIRST COURSE)
     Route: 041
  13. ETOPOSIDE. [Suspect]
     Active Substance: ETOPOSIDE
     Dosage: DOSE REINTRODUCED
     Route: 041
  14. VINCRISTINE SULFATE. [Suspect]
     Active Substance: VINCRISTINE SULFATE
     Indication: CHORIOCARCINOMA
     Route: 030
     Dates: start: 20191206, end: 20191206
  15. SODIUM CHLORIDE. [Suspect]
     Active Substance: SODIUM CHLORIDE
     Dosage: ETOPOSIDE 68MG + 0. 9% NS 500ML IVGTT BID D1.(COURSE 3)
     Route: 041
  16. ENDOXAN [Suspect]
     Active Substance: CYCLOPHOSPHAMIDE
     Dosage: DOSE REINTRODUCED
     Route: 030
  17. ETOPOSIDE. [Suspect]
     Active Substance: ETOPOSIDE
     Dosage: ETOPOSIDE + 0. 9% NS, D1-4 (SECOND COURSE)
     Route: 041
  18. ACTINOMYCETES D [Suspect]
     Active Substance: DACTINOMYCIN
     Indication: CHORIOCARCINOMA
     Dosage: ACTINOMYCETES D 0. 5MG + 5% GS 500ML IVGTT QD D1-2
     Route: 041
  19. ACTINOMYCETES D [Suspect]
     Active Substance: DACTINOMYCIN
     Dosage: ACTINOMYCETES D  0. 5 MG + 5% GS 500 ML IVGTT QD
     Route: 041
     Dates: start: 20191129, end: 20191130
  20. SODIUM CHLORIDE. [Suspect]
     Active Substance: SODIUM CHLORIDE
     Dosage: ETOPOSIDE 68MG + 0. 9% NS 500ML IVGTT BID D1-4 (COURSE 2)
     Route: 041
  21. 0.9% SODIUM CHLORIDE INJECTION [Suspect]
     Active Substance: SODIUM CHLORIDE
     Indication: MEDICATION DILUTION
     Dosage: METHOTREXATE INJECTION + 0. 9% NS D1 (FIRST COURSE)
     Route: 042
  22. 0.9% SODIUM CHLORIDE INJECTION [Suspect]
     Active Substance: SODIUM CHLORIDE
     Dosage: METHOTREXATE INJECTION 0. 136G + 0. 9% NS 500ML IVGTT BID D1-2 (SECOND COURSE)
     Route: 041
  23. ETOPOSIDE. [Suspect]
     Active Substance: ETOPOSIDE
     Dosage: ETOPOSIDE + 0. 9% NS, D1 (THIRD COURSE)
     Route: 041
  24. ACTINOMYCETES D [Suspect]
     Active Substance: DACTINOMYCIN
     Dosage: DOSE REINTRODUCED, ACTINOMYCETES D + 5% GS
     Route: 041
  25. METHOTREXATE. [Suspect]
     Active Substance: METHOTREXATE
     Dosage: METHOTREXATE INJECTION 0. 136G + 0. 9% NS D1-2 (SECOND CURSE)
     Route: 041
  26. GLUCOSE [Suspect]
     Active Substance: DEXTROSE
     Dosage: ACTINOMYCETES D FOR INJECTION D 0. 5 MG + 5% GS 500 ML IVGTT QD
     Route: 041
     Dates: start: 20191129, end: 20191130
  27. ENDOXAN [Suspect]
     Active Substance: CYCLOPHOSPHAMIDE
     Indication: CHORIOCARCINOMA
     Route: 030
     Dates: start: 20191206, end: 20191206
  28. METHOTREXATE. [Suspect]
     Active Substance: METHOTREXATE
     Indication: CHORIOCARCINOMA
     Dosage: METHOTREXATE INJECTION 0. 136G + 0. 9% NS 30ML IV QD D1 (FIRST COURSE)
     Route: 042
  29. METHOTREXATE. [Suspect]
     Active Substance: METHOTREXATE
     Dosage: METHOTREXATE INJECTION 0. 136G + 0. 9% NS D1-2 (THIRD COURSE)
     Route: 041
  30. SODIUM CHLORIDE. [Suspect]
     Active Substance: SODIUM CHLORIDE
     Route: 030
     Dates: start: 20191206, end: 20191206
  31. SODIUM CHLORIDE. [Suspect]
     Active Substance: SODIUM CHLORIDE
     Dosage: DOSE REINTRODUCED
     Route: 030
  32. METHOTREXATE. [Suspect]
     Active Substance: METHOTREXATE
     Dosage: FOURTH COURSE
     Route: 030
     Dates: start: 20191129, end: 20191130

REACTIONS (1)
  - Bone marrow failure [Recovering/Resolving]

NARRATIVE: CASE EVENT DATE: 20191207
